FAERS Safety Report 6153259-7 (Version None)
Quarter: 2009Q2

REPORT INFORMATION
  Report Type: 
  Country: None (occurrence: None)
  Receive Date: 20090413
  Receipt Date: 20090404
  Transmission Date: 20091009
  Serious: Yes (Other)
  Sender: FDA-Public Use
  Company Number: US-BAYER-200917806NA

PATIENT
  Age: 71 Year
  Sex: Female

DRUGS (6)
  1. ULTRAVIST 370 [Suspect]
     Indication: COMPUTERISED TOMOGRAM THORAX
     Dosage: TOTAL DAILY DOSE: 97 ML  UNIT DOSE: 100 ML
     Route: 042
     Dates: start: 20090403, end: 20090403
  2. SYNTHROID [Concomitant]
  3. PEPCID [Concomitant]
  4. K+ [Concomitant]
  5. GLUCOPHAGE [Concomitant]
  6. CONTRAST MEDIA [Concomitant]
     Route: 048
     Dates: start: 20090403, end: 20090403

REACTIONS (2)
  - DYSPNOEA [None]
  - URTICARIA [None]
